FAERS Safety Report 17742539 (Version 1)
Quarter: 2020Q2

REPORT INFORMATION
  Report Type: Spontaneous
  Country: NO (occurrence: NO)
  Receive Date: 20200505
  Receipt Date: 20200505
  Transmission Date: 20200714
  Serious: Yes (Hospitalization)
  Sender: FDA-Public Use
  Company Number: NO-ACCORD-180721

PATIENT
  Age: 51 Year
  Sex: Female

DRUGS (5)
  1. NEURONTIN [Concomitant]
     Active Substance: GABAPENTIN
     Indication: BONE PAIN
     Dosage: 600 MG X 3
     Route: 048
     Dates: start: 2019
  2. OMEPRAZOL PENSA [Concomitant]
     Active Substance: OMEPRAZOLE MAGNESIUM
     Indication: ABDOMINAL DISCOMFORT
     Dosage: 40 MG X 1
     Route: 048
     Dates: start: 202002
  3. OXYCODONE [Concomitant]
     Active Substance: OXYCODONE
     Dosage: 30+10+30 MG DAILY
     Dates: start: 201901
  4. VERZENIO [Suspect]
     Active Substance: ABEMACICLIB
     Indication: BREAST CANCER METASTATIC
     Dosage: 150 MG X 2
     Route: 048
     Dates: start: 20200108
  5. LETROZOL ACCORD [Suspect]
     Active Substance: LETROZOLE
     Indication: BREAST CANCER METASTATIC
     Dosage: STRENGTH: 2.5 MG, 2.5 MG X 1
     Route: 048
     Dates: start: 20190111

REACTIONS (1)
  - Muscle rupture [Recovering/Resolving]

NARRATIVE: CASE EVENT DATE: 20200228
